FAERS Safety Report 5409207-8 (Version None)
Quarter: 2007Q3

REPORT INFORMATION
  Report Type: 
  Country: None (occurrence: None)
  Receive Date: 20070807
  Receipt Date: 20070727
  Transmission Date: 20080115
  Serious: Yes (Hospitalization, Other)
  Sender: FDA-Public Use
  Company Number: 163-21880-07060546

PATIENT
  Age: 66 Year
  Sex: Male

DRUGS (5)
  1. REVLIMID [Suspect]
     Indication: MULTIPLE MYELOMA
     Dosage: 25 MG, QOD X21D/28D, ORAL
     Route: 048
     Dates: end: 20070628
  2. REVLIMID [Suspect]
     Dosage: 25 MG, DAILY X21D/28D, ORAL
     Route: 048
     Dates: start: 20070518, end: 20070613
  3. OMEPRAZOLE [Concomitant]
  4. DEXAMETHASONE TAB [Concomitant]
  5. METHADONE HCL [Concomitant]

REACTIONS (11)
  - ARTHRALGIA [None]
  - ATRIAL FIBRILLATION [None]
  - EMBOLISM VENOUS [None]
  - HAEMOGLOBIN DECREASED [None]
  - INSOMNIA [None]
  - LOBAR PNEUMONIA [None]
  - MUSCLE SPASMS [None]
  - PRURITUS [None]
  - PULMONARY EMBOLISM [None]
  - SINUS BRADYCARDIA [None]
  - SMALL INTESTINAL OBSTRUCTION [None]
